FAERS Safety Report 7324029-9 (Version None)
Quarter: 2011Q1

REPORT INFORMATION
  Report Type: 
  Country: None (occurrence: None)
  Receive Date: 20110217
  Receipt Date: 20110204
  Transmission Date: 20110831
  Serious: Yes (Other)
  Sender: FDA-Public Use
  Company Number: 026937

PATIENT
  Sex: Male

DRUGS (1)
  1. LACOSAMIDE [Suspect]

REACTIONS (2)
  - CONVULSION [None]
  - AGITATION [None]
